FAERS Safety Report 8953030 (Version 2)
Quarter: 2012Q4

REPORT INFORMATION
  Report Type: Report from Study
  Country: SG (occurrence: SG)
  Receive Date: 20121205
  Receipt Date: 20121211
  Transmission Date: 20130627
  Serious: Yes (Hospitalization)
  Sender: FDA-Public Use
  Company Number: SG-ROCHE-1160413

PATIENT
  Age: 65 Year
  Sex: Male

DRUGS (2)
  1. RAPAMYCIN [Suspect]
     Indication: HEPATIC NEOPLASM MALIGNANT
     Route: 065
  2. BEVACIZUMAB [Suspect]
     Indication: HEPATIC NEOPLASM MALIGNANT
     Route: 065

REACTIONS (2)
  - Dysphagia [Unknown]
  - Dizziness [Unknown]
